FAERS Safety Report 8251019-4 (Version None)
Quarter: 2012Q2

REPORT INFORMATION
  Report Type: 
  Country: None (occurrence: None)
  Receive Date: 20120402
  Receipt Date: 20120328
  Transmission Date: 20120825
  Serious: No
  Sender: FDA-Public Use
  Company Number: US-PFIZER INC-2012079736

PATIENT
  Sex: Male

DRUGS (3)
  1. LYRICA [Suspect]
     Indication: COMPLEX REGIONAL PAIN SYNDROME
     Dosage: 150 MG, DAILY
     Route: 048
  2. LYRICA [Suspect]
     Dosage: 75 MG, ALTERNATE DAY
     Route: 048
  3. LYRICA [Suspect]
     Dosage: 75 MG, DAILY
     Route: 048

REACTIONS (1)
  - DRUG INEFFECTIVE [None]
